FAERS Safety Report 10395231 (Version 1)
Quarter: 2014Q3

REPORT INFORMATION
  Report Type: Spontaneous
  Country: IN (occurrence: IN)
  Receive Date: 20140820
  Receipt Date: 20140820
  Transmission Date: 20150326
  Serious: Yes (Other)
  Sender: FDA-Public Use
  Company Number: IN-PAR PHARMACEUTICAL, INC-2014SCPR009330

PATIENT

DRUGS (1)
  1. LAMOTRIGINE. [Suspect]
     Active Substance: LAMOTRIGINE
     Indication: JUVENILE MYOCLONIC EPILEPSY
     Dosage: 50 MG, BID
     Route: 065

REACTIONS (4)
  - Vitamin D decreased [None]
  - Multiple sclerosis [Recovered/Resolved]
  - Demyelination [Recovered/Resolved]
  - Condition aggravated [Recovered/Resolved]
